FAERS Safety Report 24971735 (Version 2)
Quarter: 2025Q1

REPORT INFORMATION
  Report Type: Report from Study
  Country: CA (occurrence: CA)
  Receive Date: 20250214
  Receipt Date: 20250228
  Transmission Date: 20250408
  Serious: Yes (Hospitalization)
  Sender: TAIHO ONCOLOGY INC
  Company Number: CA-TAIHOP-2024-011771

PATIENT
  Age: 74 Year
  Sex: Male

DRUGS (1)
  1. INQOVI [Suspect]
     Active Substance: CEDAZURIDINE\DECITABINE
     Indication: Chronic myelomonocytic leukaemia
     Dosage: CYCLE 1?DECITABINE 35 MG + CEDAZURIDINE 100 MG ON DAYS 1 THROUGH 5 EVERY 28 DAYS
     Route: 048
     Dates: start: 20241202, end: 202501

REACTIONS (6)
  - Coronary artery disease [Unknown]
  - Urticaria [Recovered/Resolved]
  - Diarrhoea [Recovered/Resolved]
  - Nausea [Recovered/Resolved]
  - Dizziness [Unknown]
  - Fatigue [Unknown]
